FAERS Safety Report 19399351 (Version 1)
Quarter: 2021Q2

REPORT INFORMATION
  Report Type: Spontaneous
  Country: US (occurrence: US)
  Receive Date: 20210610
  Receipt Date: 20210610
  Transmission Date: 20210717
  Serious: Yes (Other)
  Sender: FDA-Public Use
  Company Number: US-GYP-000334

PATIENT
  Age: 24 Year

DRUGS (4)
  1. PREDNISONE. [Suspect]
     Active Substance: PREDNISONE
     Indication: MYASTHENIA GRAVIS
     Route: 065
  2. IMMUNOGLOBULINS NOS [Suspect]
     Active Substance: IMMUNE GLOBULIN NOS
     Indication: MYASTHENIA GRAVIS
     Dosage: IVIG, 2G/KG  WAS STARTED ON DAY 6, FOLLOWED BY BI?WEEKLY MAINTENANCE IVIG (1G/KG)
     Route: 042
  3. PREDNISONE. [Suspect]
     Active Substance: PREDNISONE
     Indication: MYASTHENIA GRAVIS
     Route: 065
  4. RITUXIMAB. [Concomitant]
     Active Substance: RITUXIMAB
     Indication: MYASTHENIA GRAVIS
     Dosage: GIVEN ON DAY 14 AND DAY 28
     Route: 065

REACTIONS (4)
  - Product use in unapproved indication [Unknown]
  - Intestinal perforation [Unknown]
  - Myasthenia gravis [Recovered/Resolved]
  - Condition aggravated [Recovered/Resolved]
